FAERS Safety Report 14657780 (Version 1)
Quarter: 2018Q1

REPORT INFORMATION
  Report Type: Spontaneous
  Country: US (occurrence: US)
  Receive Date: 20180320
  Receipt Date: 20180320
  Transmission Date: 20180509
  Serious: Yes (Hospitalization)
  Sender: FDA-Public Use
  Company Number: US-STRIDES ARCOLAB LIMITED-2018SP001958

PATIENT

DRUGS (2)
  1. BISACODYL. [Suspect]
     Active Substance: BISACODYL
     Indication: PRODUCT USED FOR UNKNOWN INDICATION
     Dosage: 10 MG, AT BED TIME
     Route: 065
  2. MACROGOL, SODIUM CHLORIDE, POTASSIUM CHLORIDE, SODIUM BICARBONATE [Suspect]
     Active Substance: POLYETHYLENE GLYCOL 3350\POTASSIUM CHLORIDE\SODIUM BICARBONATE\SODIUM CHLORIDE
     Indication: BOWEL PREPARATION
     Dosage: UNK
     Route: 065

REACTIONS (16)
  - Mental status changes [Recovered/Resolved]
  - Generalised tonic-clonic seizure [Unknown]
  - Hyponatraemia [Recovered/Resolved]
  - Spinal compression fracture [Unknown]
  - Confusional state [Unknown]
  - Hypotension [Unknown]
  - Rib fracture [None]
  - Muscle contracture [Unknown]
  - Cardiac arrest [Unknown]
  - Humerus fracture [Unknown]
  - Vomiting [Unknown]
  - Hyponatraemic encephalopathy [Unknown]
  - Disorientation [Unknown]
  - Unresponsive to stimuli [Recovered/Resolved]
  - Comminuted fracture [None]
  - Hypertonia [Unknown]
